FAERS Safety Report 15868086 (Version 5)
Quarter: 2019Q1

REPORT INFORMATION
  Report Type: Spontaneous
  Country: DE (occurrence: DE)
  Receive Date: 20190125
  Receipt Date: 20190322
  Transmission Date: 20190417
  Serious: Yes (Death, Hospitalization)
  Sender: FDA-Public Use
  Company Number: DE-ASTRAZENECA-2019SE14951

PATIENT
  Age: 398 Day
  Sex: Female
  Weight: 7 kg

DRUGS (3)
  1. SYNAGIS [Suspect]
     Active Substance: PALIVIZUMAB
     Indication: HEART DISEASE CONGENITAL
     Dosage: 100 MG MONTHLY -11-OCT-2018, 120 MG MONTHLY 08-NOV-2018, 120 MG MONTHLY 06-DEC-2018, 120 MG MONTH...
     Route: 030
     Dates: start: 20181011, end: 20190102
  2. SYNAGIS [Suspect]
     Active Substance: PALIVIZUMAB
     Indication: PROPHYLAXIS
     Dosage: 100 MG MONTHLY -11-OCT-2018, 120 MG MONTHLY 08-NOV-2018, 120 MG MONTHLY 06-DEC-2018, 120 MG MONTH...
     Route: 030
     Dates: start: 20181011, end: 20190102
  3. SYNAGIS [Suspect]
     Active Substance: PALIVIZUMAB
     Indication: CONGENITAL ANOMALY
     Dosage: 100 MG MONTHLY -11-OCT-2018, 120 MG MONTHLY 08-NOV-2018, 120 MG MONTHLY 06-DEC-2018, 120 MG MONTH...
     Route: 030
     Dates: start: 20181011, end: 20190102

REACTIONS (14)
  - Cardiac arrest [Unknown]
  - Cardiac failure [Fatal]
  - Bradycardia [Unknown]
  - Congestive cardiomyopathy [Fatal]
  - Respiratory failure [Fatal]
  - Respiratory syncytial virus infection [Fatal]
  - Cardiopulmonary failure [Fatal]
  - Dyspnoea [Unknown]
  - Respiratory syncytial virus bronchiolitis [Fatal]
  - Disease progression [Unknown]
  - Condition aggravated [Unknown]
  - Febrile convulsion [Unknown]
  - Cough [Unknown]
  - Mitral valve incompetence [Fatal]

NARRATIVE: CASE EVENT DATE: 20190102
